FAERS Safety Report 15745103 (Version 2)
Quarter: 2019Q1

REPORT INFORMATION
  Report Type: Spontaneous
  Country: US (occurrence: US)
  Receive Date: 20181220
  Receipt Date: 20190326
  Transmission Date: 20190417
  Serious: Yes (Hospitalization, Other)
  Sender: FDA-Public Use
  Company Number: US-JNJFOC-20181135085

PATIENT
  Age: 79 Year
  Sex: Female

DRUGS (1)
  1. IMBRUVICA [Suspect]
     Active Substance: IBRUTINIB
     Indication: PRODUCT USED FOR UNKNOWN INDICATION
     Dosage: 280 MG, UNK
     Route: 048

REACTIONS (4)
  - Incorrect dose administered [Unknown]
  - Fall [Unknown]
  - Off label use [Unknown]
  - Hip fracture [Unknown]

NARRATIVE: CASE EVENT DATE: 20180828
